FAERS Safety Report 17646787 (Version 4)
Quarter: 2020Q2

REPORT INFORMATION
  Report Type: Report from Study
  Country: US (occurrence: US)
  Receive Date: 20200408
  Receipt Date: 20200528
  Transmission Date: 20200713
  Serious: No
  Sender: FDA-Public Use
  Company Number: NVSC2020US092815

PATIENT
  Sex: Male

DRUGS (2)
  1. COSENTYX [Suspect]
     Active Substance: SECUKINUMAB
     Indication: PSORIASIS
     Dosage: 300 MG, QW
     Route: 058
     Dates: start: 20200415
  2. COSENTYX [Suspect]
     Active Substance: SECUKINUMAB
     Indication: DERMATITIS EXFOLIATIVE GENERALISED
     Dosage: 300 MG, QMO
     Route: 058

REACTIONS (4)
  - Product dose omission [Unknown]
  - Withdrawal syndrome [Unknown]
  - Peripheral swelling [Unknown]
  - Psoriasis [Unknown]
